FAERS Safety Report 9414965 (Version 1)
Quarter: 2013Q3

REPORT INFORMATION
  Report Type: Spontaneous
  Country: CA (occurrence: CA)
  Receive Date: 20130723
  Receipt Date: 20130723
  Transmission Date: 20140515
  Serious: Yes (Hospitalization)
  Sender: FDA-Public Use
  Company Number: PHHY2013CA075924

PATIENT
  Age: 30 Year
  Sex: Female

DRUGS (10)
  1. VANCOMYCIN [Suspect]
  2. CLINDAMYCIN [Suspect]
  3. CEFAZOLIN [Suspect]
  4. PIPERACILLIN+TAZOBACTAM [Suspect]
  5. CEFTRIAXONE [Suspect]
  6. METRONIDAZOLE [Suspect]
  7. PREDNISONE [Suspect]
     Dosage: 20 MG, QID
  8. PREDNISONE [Suspect]
     Dosage: 60 MG, QID
  9. PREDNISONE [Suspect]
     Dosage: 15 MG DAILY
  10. NARCOTICS [Suspect]
     Indication: BREAST PAIN

REACTIONS (9)
  - Red man syndrome [Recovered/Resolved]
  - Dyspnoea [Recovered/Resolved]
  - Rash generalised [Recovered/Resolved]
  - Pyrexia [Recovered/Resolved]
  - Somnolence [Unknown]
  - Hypersensitivity [Unknown]
  - Maternal exposure during pregnancy [Unknown]
  - Exposure during breast feeding [Unknown]
  - Delivery [Unknown]
